FAERS Safety Report 24184278 (Version 1)
Quarter: 2024Q3

REPORT INFORMATION
  Report Type: Spontaneous
  Country: US (occurrence: None)
  Receive Date: 20240806
  Receipt Date: 20240806
  Transmission Date: 20241017
  Serious: Yes (unspecified)
  Sender: Public
  Company Number: None

PATIENT
  Age: 58 Year
  Sex: Female

DRUGS (1)
  1. TALTZ [Suspect]
     Active Substance: IXEKIZUMAB
     Dates: start: 20240612, end: 20240806

REACTIONS (3)
  - Nausea [None]
  - Abdominal distension [None]
  - Therapy interrupted [None]

NARRATIVE: CASE EVENT DATE: 20240612
